FAERS Safety Report 17683673 (Version 3)
Quarter: 2020Q2

REPORT INFORMATION
  Report Type: Spontaneous
  Country: US (occurrence: US)
  Receive Date: 20200420
  Receipt Date: 20200508
  Transmission Date: 20200714
  Serious: No
  Sender: FDA-Public Use
  Company Number: US-AMGEN-USASP2020063685

PATIENT
  Age: 47 Year
  Sex: Male
  Weight: 54.1 kg

DRUGS (1)
  1. NEULASTA [Suspect]
     Active Substance: PEGFILGRASTIM
     Indication: NEUTROPENIA
     Dosage: 6000 MICROGRAM
     Route: 065

REACTIONS (1)
  - Device use error [Unknown]

NARRATIVE: CASE EVENT DATE: 20200416
